FAERS Safety Report 21108985 (Version 2)
Quarter: 2022Q3

REPORT INFORMATION
  Report Type: Spontaneous
  Country: US (occurrence: US)
  Receive Date: 20220721
  Receipt Date: 20220804
  Transmission Date: 20221027
  Serious: Yes (Hospitalization)
  Sender: FDA-Public Use
  Company Number: US-APOTEX-2022AP010087

PATIENT
  Age: 36 Year
  Sex: Male

DRUGS (12)
  1. ARIPIPRAZOLE [Interacting]
     Active Substance: ARIPIPRAZOLE
     Indication: Schizoaffective disorder bipolar type
     Dosage: 5 MILLIGRAM, QD
     Route: 065
     Dates: start: 20201021, end: 20210330
  2. ARIPIPRAZOLE [Interacting]
     Active Substance: ARIPIPRAZOLE
     Indication: Schizoaffective disorder bipolar type
     Dosage: 15 MILLIGRAM, QD (DAY 22)
     Route: 065
     Dates: start: 20201021, end: 20210330
  3. ARIPIPRAZOLE [Interacting]
     Active Substance: ARIPIPRAZOLE
     Indication: Schizoaffective disorder bipolar type
     Dosage: 20 MILLIGRAM, QD
     Route: 065
     Dates: start: 20201021, end: 20210330
  4. ISONIAZID [Interacting]
     Active Substance: ISONIAZID
     Indication: Latent tuberculosis
     Dosage: 300 MILLIGRAM, QD
     Route: 065
     Dates: start: 2020
  5. CLOZAPINE [Concomitant]
     Active Substance: CLOZAPINE
     Indication: Schizoaffective disorder bipolar type
     Dosage: 250 MILLIGRAM, QD
     Route: 065
     Dates: start: 20201021
  6. CLOZAPINE [Concomitant]
     Active Substance: CLOZAPINE
     Dosage: 300 MILLIGRAM, QD (DAY 17)
     Route: 065
     Dates: start: 2020
  7. VALPROIC ACID [Concomitant]
     Active Substance: VALPROIC ACID
     Indication: Schizoaffective disorder bipolar type
     Dosage: 1500 MILLIGRAM, QD
     Route: 065
     Dates: start: 20201021
  8. LORAZEPAM [Concomitant]
     Active Substance: LORAZEPAM
     Indication: Schizoaffective disorder bipolar type
     Dosage: 4 MILLIGRAM, QD (INITIAL)
     Route: 065
     Dates: start: 20201021
  9. LORAZEPAM [Concomitant]
     Active Substance: LORAZEPAM
     Dosage: 2 MILLIGRAM, QD (AFTER DAY 15) (AFTER 3 MONTHS)
     Route: 065
     Dates: start: 2021
  10. LORAZEPAM [Concomitant]
     Active Substance: LORAZEPAM
     Dosage: 3 MILLIGRAM, QD (DAY 17)
     Route: 065
     Dates: start: 2021
  11. LORAZEPAM [Concomitant]
     Active Substance: LORAZEPAM
     Dosage: 4 MILLIGRAM, QD (DAY 22)
     Route: 065
     Dates: start: 2021, end: 2021
  12. PYRIDOXINE [Concomitant]
     Active Substance: PYRIDOXINE
     Indication: Latent tuberculosis
     Dosage: 50 MILLIGRAM, QD
     Route: 065
     Dates: start: 2020

REACTIONS (10)
  - Drug interaction [Unknown]
  - Antipsychotic drug level increased [Unknown]
  - Hypomania [Recovered/Resolved]
  - Confusional state [Recovered/Resolved]
  - Paranoia [Recovered/Resolved]
  - Delusion [Recovered/Resolved]
  - Tachycardia [Recovered/Resolved]
  - Anxiety [Recovered/Resolved]
  - Decreased appetite [Recovered/Resolved]
  - Irritability [Recovered/Resolved]

NARRATIVE: CASE EVENT DATE: 20210311
